FAERS Safety Report 12234687 (Version 3)
Quarter: 2016Q3

REPORT INFORMATION
  Report Type: Spontaneous
  Country: US (occurrence: US)
  Receive Date: 20160404
  Receipt Date: 20160715
  Transmission Date: 20161109
  Serious: No
  Sender: FDA-Public Use
  Company Number: US-HORIZON-ACT-0079-2016

PATIENT
  Age: 2 Year
  Sex: Male

DRUGS (1)
  1. ACTIMMUNE [Suspect]
     Active Substance: INTERFERON GAMMA-1B
     Indication: CHRONIC GRANULOMATOUS DISEASE
     Dosage: 0.1 ML TIW

REACTIONS (3)
  - Injection site rash [Unknown]
  - Urticaria [Recovered/Resolved]
  - Injection site erythema [Recovered/Resolved]
